FAERS Safety Report 9911639 (Version 1)
Quarter: 2014Q1

REPORT INFORMATION
  Report Type: Spontaneous
  Country: CH (occurrence: CH)
  Receive Date: 20140219
  Receipt Date: 20140219
  Transmission Date: 20141002
  Serious: Yes (Hospitalization)
  Sender: FDA-Public Use
  Company Number: PHHY2014CH015289

PATIENT
  Age: 64 Year
  Sex: Female

DRUGS (23)
  1. AFINITOR [Suspect]
     Indication: BREAST CANCER
     Dosage: 10 MG, QD
     Route: 048
     Dates: start: 20130503, end: 20130829
  2. AFINITOR [Interacting]
     Dosage: 5 MG, DAY
     Dates: start: 20130830
  3. AFINITOR [Interacting]
     Dosage: 10 MG 1 PER DAY AND 5 MG EVERY SECOND DAY
     Dates: start: 20131220, end: 20140107
  4. CIPRALEX [Interacting]
     Indication: DEPRESSION
     Dosage: 20 MG, QD
     Route: 048
     Dates: start: 201312, end: 20140107
  5. CIPRALEX [Interacting]
     Indication: HYPERTENSION
  6. TEMGESIC [Interacting]
     Indication: CANCER PAIN
     Dosage: 0.2 MG
     Route: 060
  7. TRANSTEC [Interacting]
     Indication: CANCER PAIN
     Dosage: 50 UG, QH
     Route: 062
  8. NEXIUM//ESOMEPRAZOLE MAGNESIUM [Interacting]
     Dosage: 40 MG, QD
     Route: 048
  9. XGEVA [Concomitant]
     Route: 065
     Dates: start: 20130926
  10. AROMASIN [Concomitant]
     Dosage: 25 MG, QD
     Route: 048
  11. MAGNESIUM [Concomitant]
     Dosage: 5 MMOL, QD
     Route: 048
  12. IMPORTAL [Concomitant]
     Route: 048
  13. XANAX [Concomitant]
     Dosage: 1 MG, BID
     Route: 048
  14. SERESTA [Concomitant]
     Dosage: 50 MG, QD
     Route: 048
  15. DAFALGAN [Concomitant]
     Dosage: 1 G
     Route: 048
  16. IRFEN [Concomitant]
     Dosage: 400 MG
     Route: 048
  17. ARANESP [Concomitant]
     Dates: start: 20130829
  18. ARANESP [Concomitant]
     Dates: start: 20130926
  19. ARANESP [Concomitant]
     Dates: start: 20131128
  20. ARANESP [Concomitant]
     Dosage: 10 MG, QD
     Dates: start: 20131220
  21. ARANESP [Concomitant]
     Dosage: 5 MG,EVERY SECOND DAY
  22. ZYPREXA [Concomitant]
     Indication: DEPRESSION
     Dosage: 2.5 MG, QD
     Route: 048
     Dates: start: 20140116
  23. ZYPREXA [Concomitant]
     Indication: ANXIETY

REACTIONS (1)
  - Electrocardiogram QT prolonged [Recovered/Resolved]
